FAERS Safety Report 7295018-8 (Version None)
Quarter: 2011Q1

REPORT INFORMATION
  Report Type: 
  Country: None (occurrence: None)
  Receive Date: 20110216
  Receipt Date: 20110207
  Transmission Date: 20110831
  Serious: Yes (Other)
  Sender: FDA-Public Use
  Company Number: US-JNJFOC-20101002958

PATIENT
  Sex: Male
  Weight: 46.27 kg

DRUGS (7)
  1. REMICADE [Suspect]
     Route: 042
  2. VITAMIN D [Concomitant]
     Indication: MEDICAL DIET
  3. REMICADE [Suspect]
     Route: 042
  4. PENTASA [Concomitant]
     Indication: CROHN'S DISEASE
  5. IRON SUPPLEMENT [Concomitant]
     Indication: MEDICAL DIET
  6. REMICADE [Suspect]
     Indication: CROHN'S DISEASE
     Route: 042
  7. CALCIUM [Concomitant]
     Indication: MEDICAL DIET

REACTIONS (2)
  - ANAPHYLACTIC REACTION [None]
  - MUSCLE SPASMS [None]
